FAERS Safety Report 19594437 (Version 6)
Quarter: 2023Q2

REPORT INFORMATION
  Report Type: Report from Study
  Country: US (occurrence: US)
  Receive Date: 20210722
  Receipt Date: 20230524
  Transmission Date: 20230722
  Serious: Yes (Hospitalization, Other)
  Sender: FDA-Public Use
  Company Number: US-SHIRE-US201908900

PATIENT
  Sex: Female

DRUGS (3)
  1. HUMAN IMMUNOGLOBULIN G\HYALURONIDASE RECOMBINANT HUMAN [Suspect]
     Active Substance: HUMAN IMMUNOGLOBULIN G\HYALURONIDASE RECOMBINANT HUMAN
     Indication: Primary immunodeficiency syndrome
     Dosage: 40 GRAM
     Route: 058
  2. HUMAN IMMUNOGLOBULIN G\HYALURONIDASE RECOMBINANT HUMAN [Suspect]
     Active Substance: HUMAN IMMUNOGLOBULIN G\HYALURONIDASE RECOMBINANT HUMAN
     Indication: Immunodeficiency common variable
  3. TRULICITY [Suspect]
     Active Substance: DULAGLUTIDE
     Indication: Product used for unknown indication
     Dosage: UNK
     Route: 065

REACTIONS (16)
  - Pancreatitis [Unknown]
  - Urinary tract infection fungal [Unknown]
  - Erythema [Unknown]
  - Nausea [Unknown]
  - Swelling [Unknown]
  - Laryngitis [Unknown]
  - Sinusitis [Unknown]
  - Urine odour abnormal [Unknown]
  - Tooth disorder [Unknown]
  - Breast disorder [Recovered/Resolved]
  - Fatigue [Unknown]
  - Headache [Unknown]
  - Illness [Unknown]
  - Sinus disorder [Unknown]
  - Nasopharyngitis [Unknown]
  - Asthma [Unknown]
